FAERS Safety Report 7252846-2 (Version None)
Quarter: 2011Q1

REPORT INFORMATION
  Report Type: 
  Country: None (occurrence: None)
  Receive Date: 20110129
  Receipt Date: 20100317
  Transmission Date: 20110831
  Serious: No
  Sender: FDA-Public Use
  Company Number: US-ABBOTT-10P-163-0632613-00

PATIENT
  Sex: Female
  Weight: 94.432 kg

DRUGS (5)
  1. METFORMIN HCL [Concomitant]
     Indication: DIABETES MELLITUS
     Route: 048
  2. HUMIRA [Suspect]
     Indication: PSORIASIS
     Route: 058
     Dates: start: 20100201
  3. STARLIX [Concomitant]
     Indication: DIABETES MELLITUS
     Route: 048
  4. HIGH BLOOD PRESSURE MEDICATION [Concomitant]
     Indication: HYPERTENSION
  5. HUMIRA [Suspect]
     Dates: end: 20070101

REACTIONS (4)
  - PSORIASIS [None]
  - DRUG DOSE OMISSION [None]
  - JOINT STIFFNESS [None]
  - PRURITUS [None]
